FAERS Safety Report 10562677 (Version 1)
Quarter: 2014Q4

REPORT INFORMATION
  Report Type: Spontaneous
  Country: US (occurrence: None)
  Receive Date: 20141103
  Receipt Date: 20141103
  Transmission Date: 20150529
  Serious: Yes (Other)
  Sender: FDA-Public Use
  Company Number: None

PATIENT
  Age: 34 Year
  Sex: Male
  Weight: 75 kg

DRUGS (1)
  1. PROPOFOL 10 MG [Suspect]
     Active Substance: PROPOFOL
     Indication: SEDATION
     Dosage: 200 MG BOLUS AND INFUSION INTRAVENOUS
     Route: 042

REACTIONS (1)
  - Pyrexia [None]

NARRATIVE: CASE EVENT DATE: 20141030
